FAERS Safety Report 6601606-1 (Version None)
Quarter: 2010Q1

REPORT INFORMATION
  Report Type: 
  Country: None (occurrence: None)
  Receive Date: 20100225
  Receipt Date: 20100212
  Transmission Date: 20100710
  Serious: Yes (Hospitalization)
  Sender: FDA-Public Use
  Company Number: DE-ROCHE-645915

PATIENT
  Sex: Male

DRUGS (3)
  1. XELODA [Suspect]
     Dosage: TOGETHER WITH ONDANSETRON.
     Route: 048
     Dates: start: 20090626
  2. XELODA [Suspect]
     Dosage: 1500 MG IN THE MORNING, 1650 MG IN THE EVENING, TOGETHER  WITH RADIOTHERAPY
     Route: 048
  3. ONDANSETRON [Concomitant]
     Indication: DRUG USE FOR UNKNOWN INDICATION
     Dosage: INTAKE IF REQUIRED
     Route: 048
     Dates: start: 20090626

REACTIONS (3)
  - ANAL INFLAMMATION [None]
  - BACK PAIN [None]
  - CARDIOVASCULAR DISORDER [None]
